FAERS Safety Report 21166719 (Version 4)
Quarter: 2023Q1

REPORT INFORMATION
  Report Type: Spontaneous
  Country: PT (occurrence: PT)
  Receive Date: 20220803
  Receipt Date: 20230118
  Transmission Date: 20230418
  Serious: Yes (Other)
  Sender: FDA-Public Use
  Company Number: None

PATIENT
  Age: 82 Year
  Sex: Male
  Weight: 79 kg

DRUGS (24)
  1. SPIRONOLACTONE [Suspect]
     Active Substance: SPIRONOLACTONE
     Indication: Cardiac failure
     Dosage: 1X/DAY, 1 TABLET ON AN EMPTY STOMACH
     Route: 048
     Dates: start: 20220509
  2. SPIRONOLACTONE [Suspect]
     Active Substance: SPIRONOLACTONE
     Dosage: 37.5 MG, 1X/DAY, 1 TABLET ON AN EMPTY STOMACH
     Route: 048
     Dates: start: 20220317, end: 20220420
  3. SPIRONOLACTONE [Suspect]
     Active Substance: SPIRONOLACTONE
     Dosage: 25 MG, 1X/DAY, 1 TABLET ON AN EMPTY STOMACH
     Route: 048
     Dates: end: 20220317
  4. FUROSEMIDE [Suspect]
     Active Substance: FUROSEMIDE
     Indication: Cardiac failure
     Dosage: 40 MG, 1X/DAY, 1 TABLET ON AN EMPTY STOMACH
     Route: 048
     Dates: start: 20220509
  5. FUROSEMIDE [Suspect]
     Active Substance: FUROSEMIDE
     Dosage: 40 MG, 1X/DAY, 1 TABLET ON AN EMPTY STOMACH
     Route: 048
     Dates: end: 20220420
  6. VELTASSA [Suspect]
     Active Substance: PATIROMER
     Indication: Hyperkalaemia
     Dosage: 25.2 G, DAILY, 3 SACHETS OF 8.4G
     Route: 048
     Dates: start: 20201203, end: 20220225
  7. VELTASSA [Suspect]
     Active Substance: PATIROMER
     Dosage: 16.8 G, DAILY, 2 SACHETS OF 8.4G
     Route: 048
     Dates: start: 20220225, end: 20220420
  8. INVOKANA [Concomitant]
     Active Substance: CANAGLIFLOZIN
     Dosage: 100 MG, DAILY, 1 TABLET WITH SMALL LUNCH
     Route: 048
  9. PRAVASTATIN SODIUM [Concomitant]
     Active Substance: PRAVASTATIN SODIUM
     Dosage: 20 MG, DAILY, 1 TABLET AT DINNER
     Route: 048
  10. TROMALYT [Concomitant]
     Active Substance: ASPIRIN
     Dosage: 150 MG, 1X/DAY, 1 TABLET AT BREAKFAST
     Route: 048
  11. CALCIUM\POLYSTYRENE [Concomitant]
     Active Substance: CALCIUM\POLYSTYRENE
     Dosage: 1 MEASURED SPOON, 2X/DAY
     Route: 048
     Dates: end: 20220509
  12. CALCIUM\POLYSTYRENE [Concomitant]
     Active Substance: CALCIUM\POLYSTYRENE
     Dosage: 1 MEASURED SPOON, 3X/DAY
     Route: 048
     Dates: start: 20220509
  13. HUMALOG [Concomitant]
     Active Substance: INSULIN LISPRO
     Dosage: ACCORDING TO CAPILLARY BLOOD GLUCOSE
     Route: 058
  14. ENTRESTO [Concomitant]
     Active Substance: SACUBITRIL\VALSARTAN
     Dosage: 2X/DAY, 1 TABLET AT BREAKFAST + 1 TABLET AT DINNER
     Route: 048
  15. DOLUTEGRAVIR [Concomitant]
     Active Substance: DOLUTEGRAVIR
     Dosage: 50 MG, 1X/DAY, 1 TABLET WITH BREAKFAST
     Route: 048
  16. LERCANIDIPINE [Concomitant]
     Active Substance: LERCANIDIPINE
     Dosage: 1 TABLET WITH DINNER
     Route: 048
  17. BISOPROLOL [Concomitant]
     Active Substance: BISOPROLOL
     Dosage: 1 TABLET WITH BREAKFAST
     Route: 048
  18. TRAZODONE HYDROCHLORIDE [Concomitant]
     Active Substance: TRAZODONE HYDROCHLORIDE
     Dosage: 150 MG, 1X/DAY, 1 TABLET BEFORE BEDTIME
     Route: 048
  19. LANTUS [Concomitant]
     Active Substance: INSULIN GLARGINE
     Dosage: 30 IU, 1X/DAY, 30 UNITS ON AN EMPTY STOMACH
     Route: 058
  20. LANTUS [Concomitant]
     Active Substance: INSULIN GLARGINE
     Dosage: 12 IU, 1X/DAY, 12 UNITS AT BEDTIME
     Route: 058
  21. OMEPRAZOLE [Concomitant]
     Active Substance: OMEPRAZOLE
     Dosage: 20 MG, 1X/DAY, 1 TABLET ON AN EMPTY STOMACH
     Route: 048
  22. CALCIUM CARBONATE [Concomitant]
     Active Substance: CALCIUM CARBONATE
     Dosage: 1X/DAY, 1 TABLET FOR BREAKFAST
     Route: 048
  23. LAMIVUDINE [Concomitant]
     Active Substance: LAMIVUDINE
     Dosage: 150 MG, 1X/DAY, 1 TABLET FOR BREAKFAST
     Route: 048
  24. ALLOPURINOL [Concomitant]
     Active Substance: ALLOPURINOL
     Dosage: 50 MG, 1X/DAY, HALF A TABLET FOR BREAKFAST
     Route: 048

REACTIONS (3)
  - Metabolic acidosis [Recovered/Resolved]
  - Acute kidney injury [Not Recovered/Not Resolved]
  - Hyperkalaemia [Unknown]

NARRATIVE: CASE EVENT DATE: 20220225
